FAERS Safety Report 9258386 (Version 2)
Quarter: 2013Q2

REPORT INFORMATION
  Report Type: Spontaneous
  Country: US (occurrence: US)
  Receive Date: 20130426
  Receipt Date: 20130510
  Transmission Date: 20140414
  Serious: Yes (Hospitalization, Other)
  Sender: FDA-Public Use
  Company Number: PHHY2013US039627

PATIENT
  Age: 68 Year
  Sex: Female

DRUGS (4)
  1. ALLOPURINOL [Suspect]
  2. STEROIDS NOS [Concomitant]
  3. MYCOPHENOLATE MOFETIL [Concomitant]
  4. AZATHIOPRINE [Concomitant]

REACTIONS (18)
  - Myocarditis [Unknown]
  - Cough [Unknown]
  - Pyrexia [Unknown]
  - Dyspnoea [Unknown]
  - Asthenia [Unknown]
  - Pneumatosis intestinalis [Unknown]
  - Diarrhoea [Unknown]
  - Rales [Unknown]
  - Oedema peripheral [Unknown]
  - Jugular vein distension [Unknown]
  - Hypotension [Unknown]
  - Atrioventricular block complete [Unknown]
  - Pulmonary oedema [Unknown]
  - General physical health deterioration [Unknown]
  - Coronary artery disease [Unknown]
  - Ventricular dyskinesia [Unknown]
  - Ventricular hypokinesia [Unknown]
  - Stevens-Johnson syndrome [Unknown]
